APPROVED DRUG PRODUCT: PHENTERMINE HYDROCHLORIDE
Active Ingredient: PHENTERMINE HYDROCHLORIDE
Strength: 37.5MG
Dosage Form/Route: TABLET;ORAL
Application: A202942 | Product #001
Applicant: INVAGEN PHARMACEUTICALS INC
Approved: Feb 5, 2014 | RLD: No | RS: No | Type: DISCN